FAERS Safety Report 4749920-9 (Version None)
Quarter: 2005Q3

REPORT INFORMATION
  Report Type: 
  Country: None (occurrence: None)
  Receive Date: 20050822
  Receipt Date: 20050804
  Transmission Date: 20060218
  Serious: Yes (Other)
  Sender: FDA-Public Use
  Company Number: 2005JP001480

PATIENT
  Age: 58 Year
  Sex: Male
  Weight: 72 kg

DRUGS (9)
  1. PROGRAF [Suspect]
     Indication: LIVER TRANSPLANT
     Dosage: ORAL
     Route: 048
     Dates: start: 20050707, end: 20050716
  2. DIFLUCAN [Concomitant]
  3. BAKTAR (SULFAMETHOXAZOLE, TRIMETHOPRIN) TABLET [Concomitant]
  4. VALTREX [Concomitant]
  5. URSODIOL [Concomitant]
  6. LANSOPRAZOLE [Concomitant]
  7. SOLU-MEDROL [Concomitant]
  8. HEPSERA [Concomitant]
  9. ZEFFIX (LAMIVUDINE) TABLET [Concomitant]

REACTIONS (4)
  - DEPRESSED LEVEL OF CONSCIOUSNESS [None]
  - DYSKINESIA [None]
  - LEUKOENCEPHALOPATHY [None]
  - NEUROSIS [None]
